FAERS Safety Report 5516852-8 (Version None)
Quarter: 2007Q4

REPORT INFORMATION
  Report Type: 
  Country: None (occurrence: None)
  Receive Date: 20071114
  Receipt Date: 20071101
  Transmission Date: 20080405
  Serious: Yes (Hospitalization)
  Sender: FDA-Public Use
  Company Number: US-AMGEN-US250708

PATIENT
  Sex: Female

DRUGS (14)
  1. EPOGEN [Suspect]
     Indication: RENAL FAILURE CHRONIC
     Route: 058
     Dates: start: 19940101
  2. SENSIPAR [Concomitant]
     Indication: RENAL FAILURE CHRONIC
  3. PREDNISONE TAB [Concomitant]
  4. METOPROLOL TARTRATE [Concomitant]
  5. CLONIDINE [Concomitant]
  6. LIPITOR [Concomitant]
  7. MAGNESIUM OXIDE [Concomitant]
  8. KEPPRA [Concomitant]
  9. PROTONIX [Concomitant]
  10. MICARDIS [Concomitant]
  11. DIGITEK [Concomitant]
  12. DIOVAN [Concomitant]
  13. ZEMPLAR [Concomitant]
  14. MYFORTIC [Concomitant]

REACTIONS (1)
  - TRANSPLANT FAILURE [None]
